FAERS Safety Report 12431060 (Version 1)
Quarter: 2016Q2

REPORT INFORMATION
  Report Type: Report from Study
  Country: US (occurrence: US)
  Receive Date: 20160603
  Receipt Date: 20160603
  Transmission Date: 20160815
  Serious: No
  Sender: FDA-Public Use
  Company Number: US-AMGEN-USASL2016068251

PATIENT
  Age: 52 Year
  Sex: Female

DRUGS (1)
  1. ENBREL [Suspect]
     Active Substance: ETANERCEPT
     Indication: RHEUMATOID ARTHRITIS
     Dosage: 50 MG, QWK
     Route: 065
     Dates: start: 201605

REACTIONS (6)
  - Back pain [Unknown]
  - Headache [Unknown]
  - Neck pain [Unknown]
  - Road traffic accident [Unknown]
  - Corrective lens user [Unknown]
  - Spinal disorder [Unknown]

NARRATIVE: CASE EVENT DATE: 201605
